FAERS Safety Report 8530392 (Version 4)
Quarter: 2012Q4

REPORT INFORMATION
  Report Type: Report from Study
  Country: DE (occurrence: DE)
  Receive Date: 20120425
  Receipt Date: 20121204
  Transmission Date: 20130627
  Serious: Yes (Death, Hospitalization)
  Sender: FDA-Public Use
  Company Number: DE-ACTELION-A-US2012-64420

PATIENT
  Age: 62 Year
  Sex: Male
  Weight: 70 kg

DRUGS (2)
  1. VENTAVIS [Suspect]
     Indication: PULMONARY ARTERIAL HYPERTENSION
     Dosage: 2.5 ?g, Q4HR
     Route: 055
     Dates: start: 20120329
  2. REVATIO [Concomitant]

REACTIONS (6)
  - Pneumonia [Fatal]
  - Chronic obstructive pulmonary disease [Fatal]
  - Infection [Recovering/Resolving]
  - Oedema [Recovering/Resolving]
  - Dyspnoea exertional [Recovering/Resolving]
  - Chest pain [Recovering/Resolving]
